FAERS Safety Report 9858007 (Version 1)
Quarter: 2014Q1

REPORT INFORMATION
  Report Type: Spontaneous
  Country: US (occurrence: US)
  Receive Date: 20140131
  Receipt Date: 20140131
  Transmission Date: 20141002
  Serious: No
  Sender: FDA-Public Use
  Company Number: US-009507513-1401USA013238

PATIENT
  Sex: Female

DRUGS (4)
  1. COSOPT PF [Suspect]
     Indication: GLAUCOMA
     Dosage: UNK, DOSE/FREQUENCY: ONE VIAL FOR EACH EYE EVERY NIGHT.
     Route: 047
     Dates: start: 2013
  2. THERAPY UNSPECIFIED [Suspect]
     Route: 047
  3. ZIOPTAN [Suspect]
     Route: 047
  4. METFORMIN [Concomitant]
     Indication: DIABETES MELLITUS

REACTIONS (3)
  - Intraocular pressure increased [Not Recovered/Not Resolved]
  - Eye swelling [Unknown]
  - Eye irritation [Unknown]
